FAERS Safety Report 19058427 (Version 1)
Quarter: 2021Q1

REPORT INFORMATION
  Report Type: Spontaneous
  Country: CA (occurrence: CA)
  Receive Date: 20210324
  Receipt Date: 20210324
  Transmission Date: 20210420
  Serious: Yes (Other)
  Sender: FDA-Public Use
  Company Number: CA-SUN PHARMACEUTICAL INDUSTRIES LTD-2021R1-287225

PATIENT
  Age: 17 Year
  Sex: Female
  Weight: 48.3 kg

DRUGS (1)
  1. ACETAMINOPHEN. [Suspect]
     Active Substance: ACETAMINOPHEN
     Indication: PRODUCT USED FOR UNKNOWN INDICATION
     Dosage: 238.1 MILLIGRAM/KILOGRAM
     Route: 065

REACTIONS (3)
  - Nausea [Unknown]
  - Overdose [Unknown]
  - Vomiting [Not Recovered/Not Resolved]
